FAERS Safety Report 5691375-4 (Version None)
Quarter: 2008Q2

REPORT INFORMATION
  Report Type: 
  Country: None (occurrence: None)
  Receive Date: 20080402
  Receipt Date: 20080324
  Transmission Date: 20081010
  Serious: Yes (Other)
  Sender: FDA-Public Use
  Company Number: PHBS2006BR19376

PATIENT
  Age: 12 Year
  Sex: Female

DRUGS (8)
  1. EXJADE [Suspect]
     Indication: THALASSAEMIA
     Dosage: 30 MG/KG/D-1250 MG
     Route: 048
     Dates: start: 20060926
  2. EXJADE [Suspect]
     Dosage: 10 MG/KG/D-500 MG/D
     Dates: start: 20070501
  3. EXJADE [Suspect]
     Dosage: 20 MG/KG/D-1000 MG/D
     Dates: start: 20080101
  4. EXJADE [Suspect]
     Dosage: 15 MG/KG/D-750 MG/D
     Dates: start: 20080301
  5. HYDROXYUREA [Concomitant]
     Dosage: 1200 MG/DAY (30 MG/KG/DAY)
     Dates: start: 20040801, end: 20050401
  6. ENDOFOLIN [Concomitant]
  7. HYDROXYZINE [Concomitant]
  8. HYDREA [Concomitant]
     Dosage: 800 MG/DAY
     Dates: start: 20070801

REACTIONS (8)
  - ALANINE AMINOTRANSFERASE INCREASED [None]
  - ASPARTATE AMINOTRANSFERASE INCREASED [None]
  - HEPATIC FIBROSIS [None]
  - LIVER DISORDER [None]
  - PLATELET COUNT DECREASED [None]
  - PROTHROMBIN LEVEL ABNORMAL [None]
  - PROTHROMBIN TIME PROLONGED [None]
  - SERUM FERRITIN INCREASED [None]
